FAERS Safety Report 14125947 (Version 3)
Quarter: 2018Q1

REPORT INFORMATION
  Report Type: Report from Study
  Country: US (occurrence: US)
  Receive Date: 20171025
  Receipt Date: 20180205
  Transmission Date: 20180508
  Serious: Yes (Other)
  Sender: FDA-Public Use
  Company Number: US-AMGEN-USASP2017159686

PATIENT
  Age: 52 Year
  Sex: Female

DRUGS (2)
  1. ENBREL [Suspect]
     Active Substance: ETANERCEPT
     Dosage: 50 MG, QWK
     Route: 065
     Dates: start: 201710
  2. ENBREL [Suspect]
     Active Substance: ETANERCEPT
     Indication: RHEUMATOID ARTHRITIS
     Dosage: 50 MG, QWK
     Route: 065
     Dates: start: 20170926, end: 201710

REACTIONS (6)
  - Wrong technique in product usage process [Unknown]
  - Therapy non-responder [Unknown]
  - Rash [Recovered/Resolved]
  - Peripheral swelling [Recovered/Resolved]
  - Injection site erythema [Unknown]
  - Osteoporosis [Recovered/Resolved]

NARRATIVE: CASE EVENT DATE: 201709
